FAERS Safety Report 13184839 (Version 2)
Quarter: 2017Q1

REPORT INFORMATION
  Report Type: Spontaneous
  Country: JP (occurrence: JP)
  Receive Date: 20170203
  Receipt Date: 20170302
  Transmission Date: 20170428
  Serious: Yes (Hospitalization)
  Sender: FDA-Public Use
  Company Number: JP-SA-2017SA017594

PATIENT
  Age: 75 Year
  Sex: Female

DRUGS (2)
  1. LYXUMIA [Suspect]
     Active Substance: LIXISENATIDE
     Route: 058
  2. LYXUMIA [Suspect]
     Active Substance: LIXISENATIDE
     Route: 058

REACTIONS (2)
  - Pancreatitis [Unknown]
  - Multiple organ dysfunction syndrome [Unknown]
